FAERS Safety Report 25981658 (Version 3)
Quarter: 2025Q4

REPORT INFORMATION
  Report Type: Spontaneous
  Country: JP (occurrence: JP)
  Receive Date: 20251031
  Receipt Date: 20251228
  Transmission Date: 20260117
  Serious: Yes (Hospitalization, Other)
  Sender: GLAXOSMITHKLINE
  Company Number: JP-GSK-JP2025JPN136713

PATIENT
  Age: 11 Month
  Sex: Female

DRUGS (1)
  1. LAMICTAL [Suspect]
     Active Substance: LAMOTRIGINE
     Dosage: ACCIDENTALLY INGESTED MULTIPLE TABLETS OF 100 MG TAB (SUSPECTED)

REACTIONS (8)
  - Ventricular tachycardia [Recovered/Resolved]
  - Tonic convulsion [Unknown]
  - Vomiting [Unknown]
  - Nodal arrhythmia [Recovered/Resolved]
  - Hypotension [Recovering/Resolving]
  - Toxicity to various agents [Unknown]
  - Conduction disorder [Unknown]
  - Accidental exposure to product by child [Unknown]
